FAERS Safety Report 9135003 (Version 1)
Quarter: 2013Q1

REPORT INFORMATION
  Report Type: Spontaneous
  Country: DE (occurrence: DE)
  Receive Date: 20130304
  Receipt Date: 20130304
  Transmission Date: 20140127
  Serious: Yes (Other)
  Sender: FDA-Public Use
  Company Number: DE-PFIZER INC-2013067774

PATIENT
  Age: 55 Year
  Sex: Male
  Weight: 76 kg

DRUGS (5)
  1. XALATAN [Suspect]
     Indication: GLAUCOMA
     Dosage: 1 GTT BOTH EYES,  IN THE MORNING
     Route: 047
     Dates: start: 201009, end: 201012
  2. XALATAN [Suspect]
     Dosage: UNK, 1X/DAY IN MORNING
     Route: 047
     Dates: start: 201209
  3. XALACOM [Suspect]
     Indication: INTRAOCULAR PRESSURE INCREASED
     Dosage: UNK, 1X/DAY
     Route: 047
     Dates: start: 201012, end: 201209
  4. AZOPT [Suspect]
     Indication: GLAUCOMA
     Dosage: 1 GTT BOTH EYES , 2X/DAY
     Route: 047
     Dates: start: 20121208, end: 201212
  5. AZOPT [Suspect]
     Dosage: 1 GTT IN EACH EYE, 1X/DAY
     Route: 047
     Dates: start: 201212

REACTIONS (7)
  - Glaucoma [Not Recovered/Not Resolved]
  - Hypotension [Recovering/Resolving]
  - Arthralgia [Not Recovered/Not Resolved]
  - Feeling cold [Not Recovered/Not Resolved]
  - Peripheral vascular disorder [Unknown]
  - Dry eye [Recovered/Resolved]
  - Discomfort [Unknown]
